FAERS Safety Report 4389490-0 (Version None)
Quarter: 2004Q2

REPORT INFORMATION
  Report Type: 
  Country: None (occurrence: None)
  Receive Date: 20040628
  Receipt Date: 20040617
  Transmission Date: 20050107
  Serious: Yes (Hospitalization)
  Sender: FDA-Public Use
  Company Number: JP-JNJFOC-20040604406

PATIENT
  Age: 35 Year
  Sex: Female

DRUGS (3)
  1. OFLOXACIN [Suspect]
     Indication: PELVIC INFLAMMATORY DISEASE
     Dosage: 2 IN 1 DAY, ORAL
     Route: 048
     Dates: start: 20040521, end: 20040523
  2. DOXYCYCLINE [Concomitant]
  3. METRONIDAZOLE [Concomitant]

REACTIONS (2)
  - HYPOAESTHESIA [None]
  - MONOPLEGIA [None]
